FAERS Safety Report 10033227 (Version 1)
Quarter: 2014Q1

REPORT INFORMATION
  Report Type: Spontaneous
  Country: SE (occurrence: SE)
  Receive Date: 20140324
  Receipt Date: 20140324
  Transmission Date: 20141002
  Serious: Yes (Death, Other)
  Sender: FDA-Public Use
  Company Number: PHHY2014SE032045

PATIENT
  Age: 6 Year
  Sex: Female

DRUGS (5)
  1. CARBOPLATIN [Suspect]
     Indication: PRIMITIVE NEUROECTODERMAL TUMOUR
     Dosage: 1.2G/M2
  2. CISPLATIN [Suspect]
     Indication: PRIMITIVE NEUROECTODERMAL TUMOUR
     Dosage: 280 MG/M2, UNK
  3. CYCLOPHOSPHAMIDE [Suspect]
     Indication: PRIMITIVE NEUROECTODERMAL TUMOUR
     Dosage: 4.8 G/M2
  4. LOMUSTINE [Suspect]
     Indication: PRIMITIVE NEUROECTODERMAL TUMOUR
     Dosage: 300 MG/M2, UNK
  5. RADIOTHERAPY [Suspect]
     Indication: PRIMITIVE NEUROECTODERMAL TUMOUR
     Dosage: 23.4 GY, UNK

REACTIONS (4)
  - Primitive neuroectodermal tumour [Fatal]
  - Ovarian disorder [Unknown]
  - Blood luteinising hormone increased [Unknown]
  - Blood follicle stimulating hormone increased [Unknown]
